FAERS Safety Report 4263364-8 (Version None)
Quarter: 2004Q1

REPORT INFORMATION
  Report Type: 
  Country: None (occurrence: None)
  Receive Date: 20040105
  Receipt Date: 20031223
  Transmission Date: 20041129
  Serious: Yes (Other)
  Sender: FDA-Public Use
  Company Number: WAES 0312USA02529

PATIENT
  Age: 19 Year
  Sex: Female

DRUGS (4)
  1. ANTINEOPLASTIC (UNSPECIFIED) [Concomitant]
     Indication: ACUTE LYMPHOCYTIC LEUKAEMIA
  2. ELSPAR [Suspect]
     Indication: ACUTE LYMPHOCYTIC LEUKAEMIA
  3. ELSPAR [Suspect]
  4. PREDNISONE [Suspect]
     Indication: ACUTE LYMPHOCYTIC LEUKAEMIA

REACTIONS (3)
  - DIABETES MELLITUS [None]
  - DIABETIC HYPEROSMOLAR COMA [None]
  - LACTIC ACIDOSIS [None]
